FAERS Safety Report 20665310 (Version 2)
Quarter: 2022Q2

REPORT INFORMATION
  Report Type: Spontaneous
  Country: US (occurrence: US)
  Receive Date: 20220401
  Receipt Date: 20220606
  Transmission Date: 20220721
  Serious: No
  Sender: FDA-Public Use
  Company Number: None

PATIENT
  Age: 75 Year
  Sex: Female

DRUGS (2)
  1. REVLIMID [Suspect]
     Active Substance: LENALIDOMIDE
     Indication: Plasma cell myeloma
     Dosage: ONCE DAILY FOR 21 DAYS. ONGOING.
     Route: 048
     Dates: start: 20210902
  2. REVLIMID [Suspect]
     Active Substance: LENALIDOMIDE
     Dosage: FREQUENCY 21 DAYS ON AND 7 DAYS OFF.
     Route: 048
     Dates: start: 202109

REACTIONS (5)
  - Joint swelling [Unknown]
  - Prescribed underdose [Unknown]
  - Incorrect product administration duration [Unknown]
  - Peripheral swelling [Unknown]
  - Pain in extremity [Unknown]
